FAERS Safety Report 12757813 (Version 1)
Quarter: 2016Q3

REPORT INFORMATION
  Report Type: Spontaneous
  Country: US (occurrence: US)
  Receive Date: 20160919
  Receipt Date: 20160919
  Transmission Date: 20161109
  Serious: Yes (Other)
  Sender: FDA-Public Use
  Company Number: US-BAUSCH-BL-2012-000684

PATIENT
  Age: 73 Year
  Sex: Male

DRUGS (5)
  1. ISOSORBIDE DINITRATE. [Concomitant]
     Active Substance: ISOSORBIDE DINITRATE
     Indication: PRODUCT USED FOR UNKNOWN INDICATION
  2. NITROGLYCERIN. [Concomitant]
     Active Substance: NITROGLYCERIN
     Indication: PRODUCT USED FOR UNKNOWN INDICATION
  3. MIKELAN OPHTHALMIC SOLUTION [Suspect]
     Active Substance: CARTEOLOL HYDROCHLORIDE
     Dosage: 1 DROP(S) IN RIGHT EYE
     Route: 047
     Dates: start: 20120517, end: 20120517
  4. ASPIRIN. [Concomitant]
     Active Substance: ASPIRIN
     Indication: PRODUCT USED FOR UNKNOWN INDICATION
  5. MIKELAN OPHTHALMIC SOLUTION [Suspect]
     Active Substance: CARTEOLOL HYDROCHLORIDE
     Indication: OCULAR HYPERTENSION
     Route: 047
     Dates: start: 19920429, end: 19920502

REACTIONS (4)
  - Blood pressure increased [None]
  - Vision blurred [Not Recovered/Not Resolved]
  - Carotid artery disease [None]
  - Optic ischaemic neuropathy [Not Recovered/Not Resolved]

NARRATIVE: CASE EVENT DATE: 19920502
